FAERS Safety Report 25772711 (Version 1)
Quarter: 2025Q3

REPORT INFORMATION
  Report Type: Spontaneous
  Country: KR (occurrence: KR)
  Receive Date: 20250908
  Receipt Date: 20250908
  Transmission Date: 20251020
  Serious: Yes (Hospitalization)
  Sender: MYLAN
  Company Number: KR-MYLANLABS-2025M1074575

PATIENT
  Sex: Male
  Weight: 64.1 kg

DRUGS (47)
  1. LIPITOR [Suspect]
     Active Substance: ATORVASTATIN CALCIUM
     Indication: Hyperlipidaemia
     Dosage: 10 MILLIGRAM, QD
  2. BEVACIZUMAB [Suspect]
     Active Substance: BEVACIZUMAB
     Indication: Colorectal cancer metastatic
     Dosage: 330 MILLIGRAM, Q2W
     Dates: start: 20221212, end: 20221212
  3. BEVACIZUMAB [Suspect]
     Active Substance: BEVACIZUMAB
     Dosage: 388 MILLIGRAM, Q2W
     Dates: start: 20221227, end: 20221227
  4. LACTULOSE [Suspect]
     Active Substance: LACTULOSE
     Indication: Constipation prophylaxis
     Dosage: 15 MILLILITER, Q8H
     Dates: start: 20221124, end: 20230105
  5. ESOMEPRAZOLE MAGNESIUM [Suspect]
     Active Substance: ESOMEPRAZOLE MAGNESIUM
     Indication: Prophylaxis
     Dosage: 20 MILLIGRAM, QD
     Dates: start: 2021, end: 20230105
  6. CIMETIDINE [Suspect]
     Active Substance: CIMETIDINE
     Indication: Prophylaxis
     Dosage: 200 MILLIGRAM, Q8H
     Dates: start: 2022, end: 20230104
  7. METFORMIN HYDROCHLORIDE [Suspect]
     Active Substance: METFORMIN HYDROCHLORIDE
     Indication: Hypertension
     Dosage: 500 MILLIGRAM, BID (12 HOURS)
     Dates: end: 20230105
  8. DUTASTERIDE [Suspect]
     Active Substance: DUTASTERIDE
     Indication: Benign prostatic hyperplasia
     Dosage: 0.5 MILLIGRAM, QD
     Dates: end: 20221214
  9. CANDESARTAN CILEXETIL [Suspect]
     Active Substance: CANDESARTAN CILEXETIL
     Indication: Hypertension
     Dosage: 8 MILLIGRAM, QD
     Dates: end: 20221221
  10. LIMAPROST [Suspect]
     Active Substance: LIMAPROST
     Indication: Hypertension
     Dosage: 5 MICROGRAM, Q8H
     Dates: end: 20221220
  11. METFORMIN HYDROCHLORIDE [Suspect]
     Active Substance: METFORMIN HYDROCHLORIDE
     Indication: Diabetes mellitus
     Dosage: 500 MILLIGRAM, BID
  12. MORPHINE HYDROCHLORIDE [Suspect]
     Active Substance: MORPHINE HYDROCHLORIDE
     Indication: Cancer pain
     Dosage: 5 MILLIGRAM, QD
     Dates: start: 20221212, end: 20221219
  13. OXALIPLATIN [Suspect]
     Active Substance: OXALIPLATIN
     Indication: Colon cancer
     Dosage: 104 MILLIGRAM, QD
     Dates: start: 20221212, end: 20221212
  14. OXALIPLATIN [Suspect]
     Active Substance: OXALIPLATIN
     Dosage: 75 MILLIGRAM, QD
     Dates: start: 20221227, end: 20221227
  15. FLUOROURACIL [Suspect]
     Active Substance: FLUOROURACIL
     Indication: Colon cancer
     Dosage: 490 MILLIGRAM, QD
     Dates: start: 20221212, end: 20221212
  16. FLUOROURACIL [Suspect]
     Active Substance: FLUOROURACIL
     Dosage: 1470 MILLIGRAM, QD
     Dates: start: 20221212, end: 20221213
  17. FLUOROURACIL [Suspect]
     Active Substance: FLUOROURACIL
     Dosage: 354 MILLIGRAM, QD
     Dates: start: 20221227, end: 20221227
  18. FLUOROURACIL [Suspect]
     Active Substance: FLUOROURACIL
     Dosage: 1062 MILLIGRAM, QD
     Dates: start: 20221227, end: 20221228
  19. PALONOSETRON HYDROCHLORIDE [Suspect]
     Active Substance: PALONOSETRON HYDROCHLORIDE
     Indication: Prophylaxis
     Dosage: 0.25 MILLIGRAM, QD
     Dates: start: 20221212, end: 20221212
  20. PALONOSETRON HYDROCHLORIDE [Suspect]
     Active Substance: PALONOSETRON HYDROCHLORIDE
     Dosage: 0.25 MILLIGRAM, QD
     Dates: start: 20221227, end: 20221227
  21. METOCLOPRAMIDE HYDROCHLORIDE [Suspect]
     Active Substance: METOCLOPRAMIDE HYDROCHLORIDE
     Indication: Prophylaxis
     Dosage: 10 MILLIGRAM, QD
     Dates: start: 20221212, end: 20221212
  22. METOCLOPRAMIDE HYDROCHLORIDE [Suspect]
     Active Substance: METOCLOPRAMIDE HYDROCHLORIDE
     Dosage: 10 MILLIGRAM, QD
     Dates: start: 20221227, end: 20221227
  23. DEXAMETHASONE SODIUM PHOSPHATE [Suspect]
     Active Substance: DEXAMETHASONE SODIUM PHOSPHATE
     Indication: Prophylaxis
     Dosage: 10 MILLIGRAM, QD
     Dates: start: 20221212, end: 20221212
  24. DEXAMETHASONE SODIUM PHOSPHATE [Suspect]
     Active Substance: DEXAMETHASONE SODIUM PHOSPHATE
     Dosage: 8 MILLIGRAM, QD
     Dates: start: 20221213, end: 20221214
  25. DEXAMETHASONE SODIUM PHOSPHATE [Suspect]
     Active Substance: DEXAMETHASONE SODIUM PHOSPHATE
     Dosage: 10 MILLIGRAM, QD
     Dates: start: 20221227, end: 20221227
  26. DEXAMETHASONE SODIUM PHOSPHATE [Suspect]
     Active Substance: DEXAMETHASONE SODIUM PHOSPHATE
     Dosage: 8 MILLIGRAM, QD
     Dates: start: 20221228, end: 20221229
  27. CHLORPHENIRAMINE MALEATE [Suspect]
     Active Substance: CHLORPHENIRAMINE MALEATE
     Indication: Prophylaxis
     Dosage: 4 MILLIGRAM, QD
     Dates: start: 20221227, end: 20221227
  28. CHLORPHENIRAMINE MALEATE [Suspect]
     Active Substance: CHLORPHENIRAMINE MALEATE
     Dosage: 4 MILLIGRAM, QD
     Dates: start: 20221212, end: 20221212
  29. ACETAMINOPHEN [Suspect]
     Active Substance: ACETAMINOPHEN
     Indication: Premedication
     Dosage: 650 MILLIGRAM, QD
     Dates: start: 20221212, end: 20221212
  30. MINOXIDIL [Suspect]
     Active Substance: MINOXIDIL
     Indication: Hypertension
     Dosage: 5 MILLIGRAM, QD
     Dates: start: 20221219
  31. CARVEDILOL [Suspect]
     Active Substance: CARVEDILOL
     Indication: Hypertension
     Dosage: 25 MILLIGRAM, QD
     Dates: start: 20221222
  32. NICARDIPINE HYDROCHLORIDE [Suspect]
     Active Substance: NICARDIPINE HYDROCHLORIDE
     Indication: Hypertension
     Dosage: 2 MILLIGRAM, Q6H
     Dates: start: 20221216, end: 20221217
  33. DUTASTERIDE [Suspect]
     Active Substance: DUTASTERIDE
     Indication: Benign prostatic hyperplasia
     Dosage: 0.5 MILLIGRAM, QD
     Dates: start: 20221215, end: 20230106
  34. PIROXICAM [Suspect]
     Active Substance: PIROXICAM
     Indication: Cancer pain
     Dosage: 96 MILLIGRAM, QD
     Dates: start: 20221216, end: 20221227
  35. PIROXICAM [Suspect]
     Active Substance: PIROXICAM
     Dosage: 240 MILLIGRAM, QD
     Dates: start: 20221228
  36. NIFEDIPINE [Suspect]
     Active Substance: NIFEDIPINE
     Indication: Hypertension
     Dosage: 300 MILLIGRAM, QD
     Dates: start: 20221217
  37. LEUCOVORIN CALCIUM [Suspect]
     Active Substance: LEUCOVORIN CALCIUM
     Indication: Colon cancer
     Dosage: 490 MILLIGRAM, QD
     Dates: start: 20221212, end: 20221212
  38. LEUCOVORIN CALCIUM [Suspect]
     Active Substance: LEUCOVORIN CALCIUM
     Dosage: 354 MILLIGRAM, QD
     Dates: start: 20221227, end: 20221227
  39. ZOLEDRONIC ACID [Suspect]
     Active Substance: ZOLEDRONIC ACID
     Indication: Colon cancer
     Dosage: 4 MILLIGRAM, QD
     Dates: start: 20221222, end: 20221222
  40. PIPERACILLIN SODIUM\TAZOBACTAM SODIUM [Suspect]
     Active Substance: PIPERACILLIN SODIUM\TAZOBACTAM SODIUM
     Indication: Pyrexia
     Dosage: 4.5 GRAM, Q8H
     Dates: start: 20221223, end: 20221225
  41. MORPHINE [Suspect]
     Active Substance: MORPHINE
     Indication: Cancer pain
  42. ALBUMIN HUMAN [Suspect]
     Active Substance: ALBUMIN HUMAN
     Indication: Hypoalbuminaemia
     Dosage: 100 MILLILITER, QD
     Dates: start: 20221220, end: 20221221
  43. BENZYDAMINE HYDROCHLORIDE [Suspect]
     Active Substance: BENZYDAMINE HYDROCHLORIDE
     Indication: Prophylaxis
     Dosage: 15 MILLILITER, Q8H
     Dates: start: 20221219
  44. ALPRAZOLAM [Suspect]
     Active Substance: ALPRAZOLAM
     Indication: Prophylaxis
     Dosage: 0.5 DOSAGE FORM, QD
     Dates: start: 20230102
  45. ALPRAZOLAM [Suspect]
     Active Substance: ALPRAZOLAM
     Indication: Depression
  46. FENTANYL [Suspect]
     Active Substance: FENTANYL
     Indication: Prophylaxis
     Dosage: 1200 MICROGRAM, QD
     Dates: start: 20230107
  47. FENTANYL [Suspect]
     Active Substance: FENTANYL
     Indication: Colon cancer

REACTIONS (1)
  - Pneumonia [Recovered/Resolved with Sequelae]

NARRATIVE: CASE EVENT DATE: 20221229
